FAERS Safety Report 7726853-7 (Version None)
Quarter: 2011Q3

REPORT INFORMATION
  Report Type: 
  Country: None (occurrence: None)
  Receive Date: 20110902
  Receipt Date: 20110822
  Transmission Date: 20111222
  Serious: Yes (Other)
  Sender: FDA-Public Use
  Company Number: JP-GENENTECH-309766

PATIENT
  Sex: Male

DRUGS (17)
  1. TRIAZOLAMUM [Concomitant]
     Indication: PRODUCT USED FOR UNKNOWN INDICATION
  2. FLUMETHOLON [Concomitant]
     Indication: PRODUCT USED FOR UNKNOWN INDICATION
     Dosage: UNK
     Dates: start: 20090521, end: 20100126
  3. KENACORT-A OPHTHALMIC OINTMENT [Concomitant]
     Indication: PRODUCT USED FOR UNKNOWN INDICATION
     Dosage: 0.4 ML, UNK
     Dates: start: 20100407
  4. VISUDYNE [Concomitant]
     Indication: PRODUCT USED FOR UNKNOWN INDICATION
     Dosage: UNK
     Dates: start: 20090605, end: 20100820
  5. JUVELA [Concomitant]
     Indication: PRODUCT USED FOR UNKNOWN INDICATION
     Dosage: UNK
     Dates: end: 20091130
  6. CARNACULIN [Concomitant]
     Indication: PRODUCT USED FOR UNKNOWN INDICATION
     Dosage: UNK
     Dates: start: 20091201
  7. GASMOTIN [Concomitant]
     Indication: PRODUCT USED FOR UNKNOWN INDICATION
  8. CARBOCAIN [Concomitant]
     Indication: PRODUCT USED FOR UNKNOWN INDICATION
     Dosage: 6 ML, UNK
     Dates: end: 20020131
  9. DICLOD [Concomitant]
     Indication: PRODUCT USED FOR UNKNOWN INDICATION
     Dosage: UNK
     Dates: start: 20090521, end: 20091026
  10. RANIBIZUMAB [Suspect]
     Indication: AGE-RELATED MACULAR DEGENERATION
     Dosage: 0.05 ML, UNK
     Route: 031
     Dates: start: 20090520
  11. FLIVAS [Concomitant]
     Indication: PRODUCT USED FOR UNKNOWN INDICATION
  12. DORNER [Concomitant]
     Indication: PRODUCT USED FOR UNKNOWN INDICATION
     Dosage: UNK
     Dates: end: 20091130
  13. DAI-KENCHU-TO [Concomitant]
     Indication: PRODUCT USED FOR UNKNOWN INDICATION
  14. VIGAMOX [Concomitant]
     Indication: PRODUCT USED FOR UNKNOWN INDICATION
     Dosage: UNK
     Dates: start: 20090501, end: 20100601
  15. ALLYLESTRENOL [Concomitant]
     Indication: PRODUCT USED FOR UNKNOWN INDICATION
  16. TAMSULOSIN HCL [Concomitant]
     Indication: PRODUCT USED FOR UNKNOWN INDICATION
  17. LEVOFLOXACIN [Concomitant]
     Indication: PRODUCT USED FOR UNKNOWN INDICATION
     Dosage: UNK
     Dates: start: 20091201, end: 20100601

REACTIONS (2)
  - VISUAL ACUITY REDUCED [None]
  - RETINAL HAEMORRHAGE [None]
